FAERS Safety Report 5129194-X (Version None)
Quarter: 2006Q4

REPORT INFORMATION
  Report Type: 
  Country: None (occurrence: None)
  Receive Date: 20061012
  Receipt Date: 20060926
  Transmission Date: 20070319
  Serious: Yes (Hospitalization)
  Sender: FDA-Public Use
  Company Number: US-2006-011752

PATIENT
  Age: 56 Year
  Sex: Female
  Weight: 63 kg

DRUGS (7)
  1. BETASERON [Suspect]
     Indication: RELAPSING-REMITTING MULTIPLE SCLEROSIS
     Dosage: 8 MIU, EVERY 2D, SUBCUTANEOUS
     Route: 058
     Dates: start: 19940614, end: 20060310
  2. SAROTEN [Concomitant]
  3. SEA-LEGS (MECLOZINE HYDROCHLORIDE) [Concomitant]
  4. BACLOFEN [Concomitant]
  5. GABAPENTIN [Concomitant]
  6. ANALGESICS PATCH [Concomitant]
  7. IMURAN [Concomitant]

REACTIONS (6)
  - CONTUSION [None]
  - CYSTITIS [None]
  - HERPES ZOSTER [None]
  - PLATELET COUNT DECREASED [None]
  - THROMBOSIS [None]
  - TRIGEMINAL NEURALGIA [None]
